FAERS Safety Report 22190505 (Version 2)
Quarter: 2023Q2

REPORT INFORMATION
  Report Type: Other
  Country: US (occurrence: None)
  Receive Date: 20230410
  Receipt Date: 20230411
  Transmission Date: 20230722
  Serious: Yes (Hospitalization, Other)
  Sender: FDA-Public Use
  Company Number: US-ROCHE-3325207

PATIENT
  Age: 67 Year
  Sex: Male
  Weight: 52.664 kg

DRUGS (2)
  1. RITUXAN [Suspect]
     Active Substance: RITUXIMAB
     Indication: Diffuse large B-cell lymphoma
     Dosage: SIZE/STRENGTH 100 MG
     Route: 065
     Dates: start: 20210814, end: 20211201
  2. RITUXAN [Suspect]
     Active Substance: RITUXIMAB
     Route: 065
     Dates: start: 20230220

REACTIONS (7)
  - Diarrhoea [Unknown]
  - Dehydration [Unknown]
  - Decreased appetite [Unknown]
  - Recurrent cancer [Unknown]
  - Weight decreased [Not Recovered/Not Resolved]
  - Red blood cell count decreased [Unknown]
  - Haemoglobin decreased [Unknown]

NARRATIVE: CASE EVENT DATE: 20230301
